FAERS Safety Report 5833599-9 (Version None)
Quarter: 2008Q3

REPORT INFORMATION
  Report Type: 
  Country: None (occurrence: None)
  Receive Date: 20080805
  Receipt Date: 20080725
  Transmission Date: 20090109
  Serious: Yes (Death)
  Sender: FDA-Public Use
  Company Number: SE-ROCHE-577593

PATIENT
  Age: 22 Year
  Sex: Male

DRUGS (1)
  1. ROACCUTAN [Suspect]
     Indication: ACNE
     Route: 048

REACTIONS (2)
  - COMPLETED SUICIDE [None]
  - DEPRESSION [None]
